FAERS Safety Report 7473015-7 (Version None)
Quarter: 2011Q2

REPORT INFORMATION
  Report Type: 
  Country: None (occurrence: None)
  Receive Date: 20110511
  Receipt Date: 20110509
  Transmission Date: 20111010
  Serious: Yes (Life-Threatening)
  Sender: FDA-Public Use
  Company Number: FR-ROCHE-770259

PATIENT
  Sex: Male

DRUGS (2)
  1. TARCEVA [Suspect]
     Route: 048
     Dates: start: 20100625, end: 20110307
  2. AVASTIN [Suspect]
     Route: 042
     Dates: start: 20091012, end: 20110214

REACTIONS (1)
  - ACUTE MYELOID LEUKAEMIA [None]
